FAERS Safety Report 9839415 (Version 1)
Quarter: 2014Q1

REPORT INFORMATION
  Report Type: Spontaneous
  Country: US (occurrence: US)
  Receive Date: 20140123
  Receipt Date: 20140123
  Transmission Date: 20141002
  Serious: Yes (Death)
  Sender: FDA-Public Use
  Company Number: US-ROCHE-1338693

PATIENT
  Age: 62 Year
  Sex: Female

DRUGS (7)
  1. XELODA [Suspect]
     Indication: BREAST CANCER
     Dosage: 1 WK, 1 WK OFF
     Route: 048
     Dates: start: 20130209, end: 20140113
  2. KLOR-CON [Concomitant]
  3. OXYCODONE [Concomitant]
  4. ACYCLOVIR [Concomitant]
  5. GLYBURIDE [Concomitant]
  6. HYDROCHLOROTHIAZIDE [Concomitant]
  7. XGEVA [Concomitant]

REACTIONS (1)
  - Death [Fatal]
